FAERS Safety Report 15323758 (Version 1)
Quarter: 2018Q3

REPORT INFORMATION
  Report Type: Report from Study
  Country: ES (occurrence: ES)
  Receive Date: 20180828
  Receipt Date: 20180828
  Transmission Date: 20181010
  Serious: Yes (Hospitalization)
  Sender: FDA-Public Use
  Company Number: ES-ACCORD-071132

PATIENT
  Age: 86 Year
  Sex: Female

DRUGS (7)
  1. ATORVASTATIN [Concomitant]
     Active Substance: ATORVASTATIN
     Dosage: 1/24H
     Route: 048
     Dates: start: 201704
  2. SULPIRID [Concomitant]
     Active Substance: SULPIRIDE
     Dosage: 1?0?1
     Route: 048
     Dates: start: 201709
  3. SERTRALINE [Suspect]
     Active Substance: SERTRALINE HYDROCHLORIDE
     Indication: DEPRESSION
     Dosage: STRENGTH: 50
     Route: 048
     Dates: start: 201709
  4. REXER [Suspect]
     Active Substance: MIRTAZAPINE
     Indication: DEPRESSION
     Dosage: 0?0?1?STRENGTH: 15 MG
     Route: 048
     Dates: start: 201709
  5. COAPROVEL [Concomitant]
     Active Substance: HYDROCHLOROTHIAZIDE\IRBESARTAN
     Dosage: 1/24H
     Route: 048
     Dates: start: 200911
  6. ADIRO [Concomitant]
     Active Substance: ASPIRIN
     Dosage: 1/24H?STRENGTH: 100 MG
     Route: 048
     Dates: start: 201103
  7. ORFIDAL [Concomitant]
     Active Substance: LORAZEPAM
     Dosage: SI ANSIEDAD
     Route: 048

REACTIONS (3)
  - Head injury [Recovered/Resolved]
  - Syncope [Recovered/Resolved]
  - Fall [Unknown]

NARRATIVE: CASE EVENT DATE: 20171006
